FAERS Safety Report 19967491 (Version 2)
Quarter: 2021Q4

REPORT INFORMATION
  Report Type: Other
  Country: ZA (occurrence: ZA)
  Receive Date: 20211019
  Receipt Date: 20211022
  Transmission Date: 20220303
  Serious: Yes (Other)
  Sender: FDA-Public Use
  Company Number: ZA-ROCHE-2602497

PATIENT
  Sex: Female

DRUGS (1)
  1. MABTHERA [Suspect]
     Active Substance: RITUXIMAB
     Indication: Rheumatoid arthritis
     Dosage: 04/MAR/2020?REPEAT 6MONTHS LATER
     Route: 042
     Dates: start: 201908

REACTIONS (4)
  - Autoimmune eye disorder [Unknown]
  - Blindness [Unknown]
  - Blood test abnormal [Unknown]
  - Blood creatinine increased [Unknown]
